FAERS Safety Report 7522228 (Version 2)
Quarter: 2013Q3

REPORT INFORMATION
  Report Type: Spontaneous
  Country: AU (occurrence: AU)
  Receive Date: 20100803
  Receipt Date: 20130916
  Transmission Date: 20140515
  Serious: Yes (Hospitalization, Other)
  Sender: FDA-Public Use
  Company Number: US-RANBAXY-2010US-36246

PATIENT
  Age: 45 Year
  Sex: Female

DRUGS (6)
  1. VERAPAMIL [Suspect]
     Indication: ILL-DEFINED DISORDER
     Dosage: UNK
     Route: 048
  2. DIAZEPAM [Suspect]
     Indication: ILL-DEFINED DISORDER
     Dosage: UNK
     Route: 048
  3. CLONAZEPAM [Suspect]
     Indication: ILL-DEFINED DISORDER
     Dosage: UNK
     Route: 048
  4. QUETIAPINE [Suspect]
     Indication: ILL-DEFINED DISORDER
     Dosage: UNK
     Route: 048
  5. TEMAZEPAM [Suspect]
     Indication: ILL-DEFINED DISORDER
     Dosage: UNK
     Route: 048
  6. DOXEPIN [Suspect]
     Indication: ILL-DEFINED DISORDER
     Dosage: UNK
     Route: 048

REACTIONS (8)
  - Cardiac arrest [Recovered/Resolved]
  - Subendocardial ischaemia [Recovered/Resolved]
  - Overdose [Recovered/Resolved]
  - Ejection fraction decreased [Recovered/Resolved]
  - General physical health deterioration [Recovered/Resolved]
  - Abdominal distension [Recovered/Resolved]
  - Atrioventricular block first degree [Recovered/Resolved]
  - Depression [Unknown]
